FAERS Safety Report 23963554 (Version 2)
Quarter: 2024Q2

REPORT INFORMATION
  Report Type: Spontaneous
  Country: GB (occurrence: GB)
  Receive Date: 20240611
  Receipt Date: 20240627
  Transmission Date: 20240716
  Serious: Yes (Death, Hospitalization, Other)
  Sender: FDA-Public Use
  Company Number: GB-009507513-2405GBR005942

PATIENT
  Sex: Male

DRUGS (6)
  1. CAPECITABINE [Suspect]
     Active Substance: CAPECITABINE
     Indication: Pancreatic neuroendocrine tumour
     Route: 065
  2. TEMODAL [Suspect]
     Active Substance: TEMOZOLOMIDE
     Indication: Acinar cell carcinoma of pancreas
     Dosage: 640 MG, 2 DOSES
     Route: 065
  3. TEMODAL [Suspect]
     Active Substance: TEMOZOLOMIDE
     Indication: Acinar cell carcinoma of pancreas
     Dosage: 630 MG, 2 DOSES
     Route: 065
  4. TEMODAL [Suspect]
     Active Substance: TEMOZOLOMIDE
     Indication: Acinar cell carcinoma of pancreas
     Dosage: 250 MG
     Route: 065
  5. OLANZAPINE [Suspect]
     Active Substance: OLANZAPINE
     Indication: Product used for unknown indication
     Route: 065
  6. PIPERACILLIN SODIUM\TAZOBACTAM SODIUM [Suspect]
     Active Substance: PIPERACILLIN SODIUM\TAZOBACTAM SODIUM
     Indication: Product used for unknown indication
     Route: 065

REACTIONS (12)
  - Arrhythmia [Fatal]
  - Psoas abscess [Unknown]
  - Product use in unapproved indication [Unknown]
  - Malignant neoplasm progression [Unknown]
  - Product administration error [Unknown]
  - Sepsis [Unknown]
  - Hypocalcaemia [Unknown]
  - Electrolyte imbalance [Unknown]
  - Product prescribing issue [Unknown]
  - Cardiotoxicity [Unknown]
  - Accidental overdose [Unknown]
  - Myelosuppression [Unknown]
